FAERS Safety Report 18545346 (Version 1)
Quarter: 2020Q4

REPORT INFORMATION
  Report Type: Report from Study
  Country: MA (occurrence: MA)
  Receive Date: 20201125
  Receipt Date: 20201125
  Transmission Date: 20210114
  Serious: Yes (Disabling)
  Sender: FDA-Public Use
  Company Number: NVSC2020MA309535

PATIENT
  Age: 48 Year
  Sex: Female

DRUGS (2)
  1. ZITHROMAX [Suspect]
     Active Substance: AZITHROMYCIN DIHYDRATE
     Indication: PRODUCT USED FOR UNKNOWN INDICATION
     Dosage: UNK
     Route: 065
  2. KISQALI [Suspect]
     Active Substance: RIBOCICLIB
     Dosage: 200 MG
     Route: 048
     Dates: start: 20200701

REACTIONS (8)
  - Feeling abnormal [Unknown]
  - Abdominal pain upper [Unknown]
  - Hepatic pain [Unknown]
  - Fatigue [Unknown]
  - Gastrointestinal inflammation [Unknown]
  - Dyskinesia [Unknown]
  - Pyrexia [Unknown]
  - Asthenia [Unknown]

NARRATIVE: CASE EVENT DATE: 20201113
